FAERS Safety Report 23082587 (Version 1)
Quarter: 2023Q4

REPORT INFORMATION
  Report Type: Spontaneous
  Country: US (occurrence: US)
  Receive Date: 20231019
  Receipt Date: 20231019
  Transmission Date: 20240109
  Serious: Yes (Hospitalization)
  Sender: FDA-Public Use
  Company Number: US-LUOXIN-LUX-2023-US-LIT-00048

PATIENT
  Age: 24 Year
  Sex: Female

DRUGS (7)
  1. ALBUTEROL SULFATE\IPRATROPIUM BROMIDE [Suspect]
     Active Substance: ALBUTEROL SULFATE\IPRATROPIUM BROMIDE
     Indication: Asthma
  2. MAGNESIUM [Suspect]
     Active Substance: MAGNESIUM
     Indication: Asthma
  3. SOLU-MEDROL [Suspect]
     Active Substance: METHYLPREDNISOLONE SODIUM SUCCINATE
     Indication: Asthma
  4. PROPOFOL [Concomitant]
     Active Substance: PROPOFOL
     Indication: Neuromuscular blockade
  5. FENTANYL [Concomitant]
     Active Substance: FENTANYL\FENTANYL CITRATE
     Indication: Neuromuscular blockade
  6. KETAMINE [Concomitant]
     Active Substance: KETAMINE
     Indication: Neuromuscular blockade
  7. CISATRACURIUM [Concomitant]
     Active Substance: CISATRACURIUM
     Indication: Neuromuscular blockade

REACTIONS (1)
  - Drug ineffective [Unknown]
